FAERS Safety Report 5518054-8 (Version None)
Quarter: 2007Q4

REPORT INFORMATION
  Report Type: 
  Country: None (occurrence: None)
  Receive Date: 20071113
  Receipt Date: 20071026
  Transmission Date: 20080405
  Serious: No
  Sender: FDA-Public Use
  Company Number: 2007-166559-NL

PATIENT
  Age: 28 Year
  Sex: Female

DRUGS (2)
  1. NUVARING [Suspect]
     Indication: CONTRACEPTION
     Dosage: DF
     Dates: start: 20030601, end: 20071001
  2. LOVELLE [Suspect]
     Indication: CONTRACEPTION
     Dosage: DF
     Dates: start: 19920101, end: 20010101

REACTIONS (2)
  - FOCAL NODULAR HYPERPLASIA [None]
  - HAEMANGIOMA OF LIVER [None]
